FAERS Safety Report 6919500-5 (Version None)
Quarter: 2010Q3

REPORT INFORMATION
  Report Type: 
  Country: None (occurrence: None)
  Receive Date: 20100810
  Receipt Date: 20100810
  Transmission Date: 20110219
  Serious: No
  Sender: FDA-Public Use
  Company Number: None

PATIENT
  Age: 72 Year
  Sex: Female

DRUGS (1)
  1. CIPROFLOXACIN [Suspect]
     Dates: start: 20080917, end: 20080927

REACTIONS (7)
  - ASCITES [None]
  - BILIARY TRACT DISORDER [None]
  - DELIRIUM [None]
  - HEPATIC ENCEPHALOPATHY [None]
  - HEPATIC FIBROSIS [None]
  - HEPATITIS [None]
  - LIVER INJURY [None]
